FAERS Safety Report 18878618 (Version 1)
Quarter: 2021Q1

REPORT INFORMATION
  Report Type: Spontaneous
  Country: DE (occurrence: DE)
  Receive Date: 20210211
  Receipt Date: 20210211
  Transmission Date: 20210420
  Serious: Yes (Hospitalization)
  Sender: FDA-Public Use
  Company Number: DE-GLAXOSMITHKLINE-DE2021030043

PATIENT
  Age: 12 Year
  Sex: Male
  Weight: 66 kg

DRUGS (3)
  1. FLUTICASONE PROPIONATE+SALMETEROL XINAFOATE [Suspect]
     Active Substance: FLUTICASONE PROPIONATE\SALMETEROL XINAFOATE
     Indication: TONSILLITIS
     Dosage: UNK
     Route: 065
     Dates: start: 20190706, end: 20190711
  2. NYSTATINE [Suspect]
     Active Substance: NYSTATIN
     Indication: TONSILLITIS
     Dosage: UNK
     Route: 065
     Dates: start: 20190706, end: 20190711
  3. AMOXICILLIN + CLAVULANIC ACID [Suspect]
     Active Substance: AMOXICILLIN\CLAVULANIC ACID
     Indication: TONSILLITIS
     Dosage: UNK
     Route: 065
     Dates: start: 20190706, end: 20190711

REACTIONS (3)
  - Vomiting [Recovering/Resolving]
  - Diarrhoea [Recovering/Resolving]
  - Weight decreased [Recovering/Resolving]

NARRATIVE: CASE EVENT DATE: 20190709
